FAERS Safety Report 5226305-2 (Version None)
Quarter: 2007Q1

REPORT INFORMATION
  Report Type: 
  Country: None (occurrence: None)
  Receive Date: 20070201
  Receipt Date: 20070124
  Transmission Date: 20070707
  Serious: Yes (Hospitalization)
  Sender: FDA-Public Use
  Company Number: US-ELI_LILLY_AND_COMPANY-US200606002928

PATIENT
  Age: 45 Year
  Sex: Male
  Weight: 99.773 kg

DRUGS (4)
  1. ZYPREXA [Suspect]
     Dosage: 10 MG, UNK
     Dates: start: 19960101, end: 20060101
  2. ARIPIPRAZOLE [Concomitant]
     Dates: start: 20060101
  3. DEPAKOTE [Concomitant]
     Dates: start: 19960601
  4. BUPROPION HCL [Concomitant]
     Dates: start: 19960601

REACTIONS (8)
  - BLOOD CHOLESTEROL ABNORMAL [None]
  - BLOOD TRIGLYCERIDES INCREASED [None]
  - DIABETES MELLITUS NON-INSULIN-DEPENDENT [None]
  - GLYCOSURIA [None]
  - HYPERGLYCAEMIA [None]
  - HYPERTENSION [None]
  - THROMBOSIS [None]
  - WEIGHT DECREASED [None]
